FAERS Safety Report 7269532-5 (Version None)
Quarter: 2011Q1

REPORT INFORMATION
  Report Type: 
  Country: None (occurrence: None)
  Receive Date: 20110202
  Receipt Date: 20110119
  Transmission Date: 20110831
  Serious: Yes (Other)
  Sender: FDA-Public Use
  Company Number: US-RANBAXY-2011RR-41448

PATIENT
  Sex: Male

DRUGS (3)
  1. LEVAQUIN [Suspect]
     Indication: KIDNEY INFECTION
     Dosage: 250 MG, QD
     Route: 048
     Dates: start: 20041207
  2. CIPROFLOXACIN [Suspect]
     Indication: KIDNEY INFECTION
     Dosage: UNK
     Route: 065
     Dates: start: 20050101
  3. LEVAQUIN [Suspect]
     Indication: BACTERIAL INFECTION
     Dosage: 250 MG, QD
     Dates: start: 20041229

REACTIONS (4)
  - TENDON RUPTURE [None]
  - LIGAMENT RUPTURE [None]
  - ARTHRALGIA [None]
  - BURSITIS [None]
